FAERS Safety Report 4531550-5 (Version None)
Quarter: 2004Q4

REPORT INFORMATION
  Report Type: 
  Country: None (occurrence: None)
  Receive Date: 20041220
  Receipt Date: 20041201
  Transmission Date: 20050328
  Serious: Yes (Other)
  Sender: FDA-Public Use
  Company Number: PHEH2004US12951

PATIENT
  Age: 71 Year
  Sex: Male

DRUGS (1)
  1. AREDIA [Suspect]
     Indication: METASTASES TO BONE
     Dosage: 90 MG, QMO
     Dates: start: 19981218, end: 20040512

REACTIONS (4)
  - BONE LESION [None]
  - NEPHROGENIC ANAEMIA [None]
  - OSTEONECROSIS [None]
  - RENAL FAILURE CHRONIC [None]
